FAERS Safety Report 25987126 (Version 2)
Quarter: 2025Q4

REPORT INFORMATION
  Report Type: Spontaneous
  Country: US (occurrence: US)
  Receive Date: 20251103
  Receipt Date: 20251107
  Transmission Date: 20260118
  Serious: No
  Sender: ANI
  Company Number: US-ANIPHARMA-031019

PATIENT
  Age: 62 Year
  Sex: Male

DRUGS (1)
  1. OPIUM TINCTURE [Suspect]
     Active Substance: MORPHINE
     Indication: Diarrhoea
     Dosage: VERY REGULAR DOSAGE OF 118ML PER MONTH
     Route: 048
     Dates: start: 20251017

REACTIONS (2)
  - Product taste abnormal [Unknown]
  - Drug ineffective [Unknown]
